APPROVED DRUG PRODUCT: AXUMIN
Active Ingredient: FLUCICLOVINE F-18
Strength: 9-221mCi/ML
Dosage Form/Route: SOLUTION;INTRAVENOUS
Application: N208054 | Product #001
Applicant: BLUE EARTH DIAGNOSTICS LTD
Approved: May 27, 2016 | RLD: Yes | RS: Yes | Type: RX

PATENTS:
Patent 10124079 | Expires: Dec 30, 2035
Patent 9387266 | Expires: Nov 28, 2026
Patent 11980674 | Expires: Apr 23, 2042
Patent 10716868 | Expires: Dec 30, 2035
Patent 10967077 | Expires: Dec 30, 2035
Patent 10953112 | Expires: Nov 28, 2026
Patent 10933147 | Expires: Dec 30, 2035
Patent 10010632 | Expires: Nov 28, 2026